FAERS Safety Report 12986045 (Version 1)
Quarter: 2016Q4

REPORT INFORMATION
  Report Type: Spontaneous
  Country: CA (occurrence: CA)
  Receive Date: 20161130
  Receipt Date: 20161130
  Transmission Date: 20170207
  Serious: Yes (Other)
  Sender: FDA-Public Use
  Company Number: CA-CONCORDIA PHARMACEUTICALS INC.-E2B_00007924

PATIENT
  Age: 63 Year
  Sex: Male

DRUGS (5)
  1. ALFUZOSIN [Suspect]
     Active Substance: ALFUZOSIN
     Indication: PRODUCT USED FOR UNKNOWN INDICATION
     Route: 065
  2. DESLORATADINE. [Suspect]
     Active Substance: DESLORATADINE
     Route: 065
  3. DIGOXIN. [Concomitant]
     Active Substance: DIGOXIN
  4. PYRIDOXINE [Concomitant]
     Active Substance: PYRIDOXINE
  5. AMIODARONE [Concomitant]
     Active Substance: AMIODARONE

REACTIONS (7)
  - Syncope [Recovered/Resolved]
  - Drug interaction [Unknown]
  - Electrocardiogram QT prolonged [Recovered/Resolved]
  - Hyperhidrosis [Recovered/Resolved]
  - Bradycardia [Recovered/Resolved]
  - Bundle branch block [Recovered/Resolved]
  - Dizziness [Recovered/Resolved]
